FAERS Safety Report 4321936-6 (Version None)
Quarter: 2004Q1

REPORT INFORMATION
  Report Type: 
  Country: None (occurrence: None)
  Receive Date: 20040323
  Receipt Date: 20031209
  Transmission Date: 20041129
  Serious: No
  Sender: FDA-Public Use
  Company Number: US-BRISTOL-MYERS SQUIBB COMPANY-12453734

PATIENT
  Age: 53 Year
  Sex: Male

DRUGS (4)
  1. PRAVIGARD PAC [Suspect]
     Indication: BLOOD CHOLESTEROL INCREASED
     Route: 048
  2. SONATA [Concomitant]
  3. ANDROGEL [Concomitant]
  4. HISTINEX [Concomitant]

REACTIONS (1)
  - PALPITATIONS [None]
